FAERS Safety Report 14937775 (Version 1)
Quarter: 2018Q2

REPORT INFORMATION
  Report Type: Spontaneous
  Country: TR (occurrence: TR)
  Receive Date: 20180525
  Receipt Date: 20180525
  Transmission Date: 20180711
  Serious: Yes (Other)
  Sender: FDA-Public Use
  Company Number: TR-REGENERON PHARMACEUTICALS, INC.-2018-24582

PATIENT

DRUGS (2)
  1. EYLEA [Suspect]
     Active Substance: AFLIBERCEPT
     Indication: AGE-RELATED MACULAR DEGENERATION
     Dosage: 5 OR 6 EYLEA INJECTIONS RECEIVED
  2. EYLEA [Suspect]
     Active Substance: AFLIBERCEPT
     Dosage: RIGHT EYE, ONCE
     Dates: start: 20180315, end: 20180315

REACTIONS (3)
  - Vitreous haze [Recovered/Resolved]
  - Anterior chamber flare [Recovered/Resolved]
  - Vision blurred [Recovered/Resolved]

NARRATIVE: CASE EVENT DATE: 201803
